FAERS Safety Report 18556141 (Version 1)
Quarter: 2020Q4

REPORT INFORMATION
  Report Type: Report from Study
  Country: IT (occurrence: IT)
  Receive Date: 20201128
  Receipt Date: 20201128
  Transmission Date: 20210114
  Serious: Yes (Other)
  Sender: FDA-Public Use
  Company Number: IT-ROCHE-2720766

PATIENT
  Age: 71 Year
  Sex: Female
  Weight: 68 kg

DRUGS (7)
  1. ARMOLIPID [Concomitant]
     Indication: DYSLIPIDAEMIA
     Dosage: 1 CP
     Route: 048
  2. ATEZOLIZUMAB. [Suspect]
     Active Substance: ATEZOLIZUMAB
     Indication: COLORECTAL CANCER METASTATIC
     Dosage: 840 MG IV OVER 30 MINUTES(60 MINUTES AT THE FIRST INFUSION) DAY 1 (AS PER PROTOCOL)?DATE OF MOST RE
     Route: 042
     Dates: start: 20200225
  3. 5-FLUOROURACIL [Suspect]
     Active Substance: FLUOROURACIL
     Indication: COLORECTAL CANCER METASTATIC
     Dosage: 3200 MG/SQM 48 H-CONTINUOUS INFUSION, STARTING ON DAY 1 (TO BE REPEATED EVERY 2 WEEKS FOR A MAXIMUM
     Route: 065
     Dates: start: 20200225
  4. IRINOTECAN [Suspect]
     Active Substance: IRINOTECAN
     Indication: COLORECTAL CANCER METASTATIC
     Dosage: 165 MG/SQM IV OVER 60 MINUTES DAY 1 (AS PER PROTOCOL)?DATE OF MOST RECENT ADMINISTRATION PRIOR TO SA
     Route: 042
     Dates: start: 20200225
  5. OXALIPLATIN. [Suspect]
     Active Substance: OXALIPLATIN
     Indication: COLORECTAL CANCER METASTATIC
     Dosage: 85 MG/SQM IV OVER 2 HOURS DAY 1 (AS PER PROTOCOL)?DATE OF MOST RECENT ADMINISTRATION PRIOR TO SAE: 2
     Route: 042
     Dates: start: 20200225
  6. SEQUACOR [Concomitant]
     Active Substance: BISOPROLOL
     Indication: HYPERTENSION
     Route: 048
  7. BEVACIZUMAB. [Suspect]
     Active Substance: BEVACIZUMAB
     Indication: COLORECTAL CANCER METASTATIC
     Dosage: 5 MG/KG IV OVER 30 MINUTES DAY 1 (AS PER PROTOCOL)?DATE OF MOST RECENT ADMINISTRATION PRIOR TO SAE:
     Route: 042
     Dates: start: 20200225

REACTIONS (1)
  - Blood corticotrophin decreased [Recovered/Resolved with Sequelae]

NARRATIVE: CASE EVENT DATE: 20200605
